FAERS Safety Report 6238098-0 (Version None)
Quarter: 2009Q2

REPORT INFORMATION
  Report Type: 
  Country: None (occurrence: None)
  Receive Date: 20090622
  Receipt Date: 20090513
  Transmission Date: 20091009
  Serious: Yes (Hospitalization)
  Sender: FDA-Public Use
  Company Number: TR-ELI_LILLY_AND_COMPANY-TR200906003589

PATIENT

DRUGS (6)
  1. HUMULIN R [Suspect]
     Indication: DIABETES MELLITUS
     Dosage: 14 U, EACH MORNING
     Route: 058
     Dates: start: 20090101
  2. HUMULIN R [Suspect]
     Dosage: 14 U, AT LUNCH
     Route: 058
     Dates: start: 20090101
  3. HUMULIN R [Suspect]
     Dosage: 14 IU, EACH EVENING
     Route: 058
     Dates: start: 20090101
  4. HUMULIN N [Suspect]
     Indication: DIABETES MELLITUS
     Dosage: 12 IU, EACH EVENING
     Route: 058
     Dates: start: 20090101
  5. VFEND [Concomitant]
     Indication: INFECTION
     Dosage: UNK, 2/D
     Route: 048
  6. OTHER CHEMOTHERAPEUTICS [Concomitant]
     Indication: LEUKAEMIA
     Dosage: UNK, ONE EVERY 21 DAYS
     Route: 048

REACTIONS (2)
  - HYPERGLYCAEMIA [None]
  - LEUKAEMIA [None]
